FAERS Safety Report 9629114 (Version 1)
Quarter: 2013Q4

REPORT INFORMATION
  Report Type: Spontaneous
  Country: US (occurrence: US)
  Receive Date: 20131017
  Receipt Date: 20131017
  Transmission Date: 20140711
  Serious: No
  Sender: FDA-Public Use
  Company Number: US-TEVA-438720USA

PATIENT
  Sex: Female

DRUGS (3)
  1. COPAXONE [Suspect]
     Indication: RELAPSING-REMITTING MULTIPLE SCLEROSIS
  2. ESTRADIOL [Concomitant]
  3. PROGESTERONE [Concomitant]

REACTIONS (4)
  - Injection site reaction [Recovered/Resolved]
  - Hormone level abnormal [Recovered/Resolved]
  - Hormone level abnormal [Recovered/Resolved]
  - Wrong technique in drug usage process [Unknown]
